FAERS Safety Report 5384732-7 (Version None)
Quarter: 2007Q3

REPORT INFORMATION
  Report Type: 
  Country: None (occurrence: None)
  Receive Date: 20070711
  Receipt Date: 20070629
  Transmission Date: 20080115
  Serious: Yes (Hospitalization, Other)
  Sender: FDA-Public Use
  Company Number: CA-PFIZER INC-2007054518

PATIENT
  Age: 55 Year
  Sex: Female

DRUGS (1)
  1. SU-011,248 [Suspect]
     Indication: METASTATIC RENAL CELL CARCINOMA
     Route: 048
     Dates: start: 20070524, end: 20070601

REACTIONS (2)
  - CEREBROVASCULAR ACCIDENT [None]
  - VOMITING [None]
